FAERS Safety Report 6342366-1 (Version None)
Quarter: 2009Q3

REPORT INFORMATION
  Report Type: 
  Country: None (occurrence: None)
  Receive Date: 20090907
  Receipt Date: 20090825
  Transmission Date: 20100115
  Serious: Yes (Other)
  Sender: FDA-Public Use
  Company Number: AU-ELI_LILLY_AND_COMPANY-AU200908002977

PATIENT
  Sex: Male
  Weight: 132 kg

DRUGS (8)
  1. BYETTA [Suspect]
     Dosage: 10 UG, DAILY (1/D)
     Route: 065
     Dates: start: 20081226, end: 20090227
  2. ALCOHOL [Concomitant]
     Dosage: UNK, UNKNOWN
     Route: 065
  3. AVAPRO [Concomitant]
     Dosage: UNK, UNKNOWN
     Route: 065
  4. DIAMICRON [Concomitant]
     Dosage: UNK, UNKNOWN
     Route: 065
  5. EFFEXOR [Concomitant]
     Dosage: UNK, UNKNOWN
     Route: 065
  6. METFORMIN HYDROCHLORIDE [Concomitant]
     Dosage: UNK, UNKNOWN
     Route: 065
  7. NORVASC [Concomitant]
     Dosage: UNK, UNKNOWN
     Route: 065
  8. TRITACE [Concomitant]
     Dosage: UNK, UNKNOWN
     Route: 065

REACTIONS (1)
  - PANCREATITIS [None]
